FAERS Safety Report 7390021-1 (Version None)
Quarter: 2011Q1

REPORT INFORMATION
  Report Type: 
  Country: None (occurrence: None)
  Receive Date: 20110324
  Receipt Date: 20110314
  Transmission Date: 20110831
  Serious: Yes (Death)
  Sender: FDA-Public Use
  Company Number: UTC-005710

PATIENT
  Age: 49 Year
  Sex: Female
  Weight: 56.81 kg

DRUGS (4)
  1. REMODULIN [Suspect]
     Indication: PULMONARY HYPERTENSION
     Dosage: 128.16 UG/KG (0.089 IG/KG, 1 IN 1 MIN), INTRAVENOUS
     Route: 042
     Dates: start: 20070806
  2. COUMADIN [Concomitant]
  3. TRACLEER [Concomitant]
  4. REVATIO [Concomitant]

REACTIONS (1)
  - DEATH [None]
